FAERS Safety Report 6749148-7 (Version None)
Quarter: 2010Q2

REPORT INFORMATION
  Report Type: 
  Country: None (occurrence: None)
  Receive Date: 20100601
  Receipt Date: 20100526
  Transmission Date: 20101027
  Serious: Yes (Other)
  Sender: FDA-Public Use
  Company Number: US-BAYER-200830832NA

PATIENT
  Age: 28 Year
  Sex: Female

DRUGS (3)
  1. BETASERON [Suspect]
     Indication: RELAPSING-REMITTING MULTIPLE SCLEROSIS
     Dosage: TOTAL DAILY DOSE: 2 MIU
     Route: 058
     Dates: start: 20071219, end: 20081214
  2. BETASERON [Suspect]
     Dosage: TOTAL DAILY DOSE: 4 MIU
     Route: 058
     Dates: start: 20090516, end: 20090722
  3. BETASERON [Suspect]
     Dosage: TOTAL DAILY DOSE: 8 MIU
     Route: 058
     Dates: start: 20090819

REACTIONS (25)
  - AMENORRHOEA [None]
  - BOWEL MOVEMENT IRREGULARITY [None]
  - COUGH [None]
  - DIZZINESS [None]
  - DYSPHAGIA [None]
  - FALL [None]
  - FATIGUE [None]
  - FEELING COLD [None]
  - HEAD INJURY [None]
  - HYPERPHAGIA [None]
  - HYPERSOMNIA [None]
  - IRRITABILITY [None]
  - LOSS OF CONSCIOUSNESS [None]
  - MEMORY IMPAIRMENT [None]
  - MOVEMENT DISORDER [None]
  - MULTIPLE SCLEROSIS [None]
  - NAUSEA [None]
  - PAIN [None]
  - PAIN IN EXTREMITY [None]
  - SKIN WARM [None]
  - STARING [None]
  - TREMOR [None]
  - URINARY RETENTION [None]
  - WEIGHT DECREASED [None]
  - WEIGHT INCREASED [None]
